FAERS Safety Report 8950598 (Version 1)
Quarter: 2012Q4

REPORT INFORMATION
  Report Type: Spontaneous
  Country: US (occurrence: None)
  Receive Date: 20121204
  Receipt Date: 20121204
  Transmission Date: 20130627
  Serious: Yes (Hospitalization, Disabling, Other)
  Sender: FDA-Public Use
  Company Number: None

PATIENT
  Age: 27 Year
  Sex: Female
  Weight: 68.04 kg

DRUGS (1)
  1. MIRENA IUD BAYER [Suspect]
     Indication: BIRTH CONTROL
     Dates: start: 20081022, end: 20120402

REACTIONS (13)
  - Pregnancy with contraceptive device [None]
  - Maternal exposure during pregnancy [None]
  - Incorrect dose administered by device [None]
  - Product quality issue [None]
  - Migraine [None]
  - Hormone level abnormal [None]
  - Joint dislocation [None]
  - Premature delivery [None]
  - Pubis fracture [None]
  - Haemorrhage [None]
  - Anaesthetic complication [None]
  - Gallbladder disorder [None]
  - Device malfunction [None]
